FAERS Safety Report 9780594 (Version 2)
Quarter: 2013Q4

REPORT INFORMATION
  Report Type: Report from Study
  Country: BE (occurrence: BE)
  Receive Date: 20131224
  Receipt Date: 20131224
  Transmission Date: 20140711
  Serious: Yes (Hospitalization)
  Sender: FDA-Public Use
  Company Number: BE-ASTRAZENECA-2013SE07054

PATIENT
  Age: 28504 Day
  Sex: Female

DRUGS (10)
  1. AZD6140 [Suspect]
     Indication: CORONARY ARTERY DISEASE
     Route: 048
     Dates: start: 20120605, end: 20121025
  2. STUDY PROCEDURE [Suspect]
     Indication: CORONARY ARTERY DISEASE
  3. PLAVIX [Suspect]
     Indication: ACUTE CORONARY SYNDROME
     Route: 048
     Dates: end: 20120529
  4. BISOPROLOL [Concomitant]
     Indication: ISCHAEMIC HEART DISEASE PROPHYLAXIS
     Route: 048
  5. DORMONOCT [Concomitant]
     Indication: SLEEP DISORDER
     Route: 048
  6. SELENIUM [Concomitant]
     Indication: MEMORY IMPAIRMENT
     Route: 048
  7. ZOCOR [Concomitant]
     Indication: HYPERLIPIDAEMIA
     Route: 048
  8. L-THYROXINE [Concomitant]
     Indication: THYROID DISORDER
     Route: 048
  9. COVERSYL [Concomitant]
     Indication: HYPERTENSION
     Route: 048
  10. ASA [Concomitant]
     Route: 048

REACTIONS (1)
  - General physical health deterioration [Recovered/Resolved]
